FAERS Safety Report 8619455 (Version 3)
Quarter: 2012Q4

REPORT INFORMATION
  Report Type: 
  Country: JP (occurrence: JP)
  Receive Date: 20120618
  Receipt Date: 20120906
  Transmission Date: 20130627
  Serious: Yes (Death)
  Sender: FDA-Public Use
  Company Number: JP-SANOFI-AVENTIS-2012SA041265

PATIENT
  Age: 77 Year
  Sex: Male
  Weight: 66.95 kg

DRUGS (6)
  1. TAXOTERE [Suspect]
     Indication: PROSTATE CANCER RECURRENT
     Dosage: dose: 70mg/m2/day
     Route: 041
     Dates: start: 20120522, end: 20120522
  2. PREDONINE [Concomitant]
     Indication: PROSTATE CANCER RECURRENT
     Dates: start: 20120517, end: 20120528
  3. MAINTATE [Concomitant]
     Indication: HYPERTENSION
     Route: 048
     Dates: end: 20120528
  4. LASIX [Concomitant]
     Indication: HYPERTENSION
     Dates: end: 20120528
  5. ALDACTONE-A [Concomitant]
     Indication: HYPERTENSION
     Route: 048
     Dates: end: 20120528
  6. URSO [Concomitant]
     Indication: HEPATIC CIRRHOSIS
     Route: 048
     Dates: end: 20120528

REACTIONS (11)
  - Hepatic encephalopathy [Fatal]
  - Blood bilirubin decreased [Fatal]
  - Depressed level of consciousness [Fatal]
  - Ammonia increased [Fatal]
  - Gastrointestinal haemorrhage [Fatal]
  - Melaena [Fatal]
  - Blood pressure decreased [Fatal]
  - Leukopenia [Fatal]
  - Pyrexia [Fatal]
  - Neutropenia [Fatal]
  - Thrombocytopenia [Fatal]
